FAERS Safety Report 8242406-9 (Version None)
Quarter: 2012Q1

REPORT INFORMATION
  Report Type: 
  Country: None (occurrence: None)
  Receive Date: 20120329
  Receipt Date: 20110319
  Transmission Date: 20120608
  Serious: Yes (Death)
  Sender: FDA-Public Use
  Company Number: FR-SANOFI-AVENTIS-2009SA007514

PATIENT
  Age: 75 Year
  Sex: Male
  Weight: 87 kg

DRUGS (15)
  1. SINTROM [Concomitant]
     Dates: start: 20060101
  2. LOVENOX [Concomitant]
     Dates: start: 20091124, end: 20091201
  3. DOCETAXEL [Suspect]
     Route: 042
     Dates: start: 20091204, end: 20091204
  4. PREDNISONE TAB [Suspect]
     Route: 048
     Dates: start: 20091113, end: 20091204
  5. DIGOXIN [Concomitant]
     Dates: start: 19890101
  6. FUROSEMIDE [Concomitant]
     Dates: start: 19890101
  7. DAONIL SEMI [Concomitant]
     Dates: start: 20060101
  8. ALLOPURINOL [Concomitant]
  9. ATACAND [Concomitant]
  10. DECAPEPTYL /SWE/ [Concomitant]
     Indication: HORMONE REPLACEMENT THERAPY
     Dates: start: 19990101
  11. PLACEBO [Suspect]
     Route: 042
     Dates: start: 20091204, end: 20091204
  12. PLACEBO [Suspect]
     Route: 042
     Dates: start: 20091113, end: 20091113
  13. DOCETAXEL [Suspect]
     Route: 042
     Dates: start: 20091113, end: 20091113
  14. ATORVASTATIN [Concomitant]
  15. ACEBUTOLOL [Concomitant]
     Dates: start: 19890101

REACTIONS (1)
  - HAEMORRHAGIC STROKE [None]
